FAERS Safety Report 8254319 (Version 2)
Quarter: 2012Q4

REPORT INFORMATION
  Report Type: 
  Country: CA (occurrence: CA)
  Receive Date: 20111118
  Receipt Date: 20120828
  Transmission Date: 20130627
  Serious: Yes (Hospitalization)
  Sender: FDA-Public Use
  Company Number: CA-JNJFOC-20111104363

PATIENT
  Age: 70 Year
  Sex: Male
  Weight: 80 kg

DRUGS (6)
  1. REMICADE [Suspect]
     Indication: RHEUMATOID ARTHRITIS
     Route: 042
     Dates: start: 20090729
  2. METHOTREXATE [Concomitant]
     Indication: RHEUMATOID ARTHRITIS
     Route: 065
     Dates: start: 200907
  3. FOLIC ACID [Concomitant]
     Route: 065
     Dates: start: 200907
  4. PREDNISOLONE [Concomitant]
     Route: 065
     Dates: start: 200907
  5. ATACAND [Concomitant]
     Route: 065
  6. ADALAT [Concomitant]
     Route: 065

REACTIONS (1)
  - Pneumonia legionella [Recovered/Resolved]
